FAERS Safety Report 6754440-6 (Version None)
Quarter: 2010Q2

REPORT INFORMATION
  Report Type: 
  Country: None (occurrence: None)
  Receive Date: 20100603
  Receipt Date: 20100521
  Transmission Date: 20101027
  Serious: Yes (Hospitalization)
  Sender: FDA-Public Use
  Company Number: PHHY2010CH32839

PATIENT
  Age: 77 Year
  Sex: Female

DRUGS (6)
  1. SANDIMMUNE [Suspect]
     Indication: RENAL TRANSPLANT
     Dosage: 250 MG/DAY
     Dates: start: 20100215
  2. PROGRAF [Suspect]
     Indication: RENAL TRANSPLANT
     Dosage: UNK
     Dates: start: 20090815, end: 20100215
  3. ADALAT CC [Suspect]
     Dosage: 30 MG/DAY
     Dates: start: 20090815
  4. PREDNISONE [Suspect]
     Indication: RENAL TRANSPLANT
     Dosage: 5 MG/DAY
     Dates: start: 20090815, end: 20100215
  5. IMUREK [Concomitant]
     Indication: RENAL TRANSPLANT
  6. METOPROLOL TARTRATE [Concomitant]

REACTIONS (3)
  - AGRANULOCYTOSIS [None]
  - ANAEMIA [None]
  - BONE MARROW FAILURE [None]
